FAERS Safety Report 17295897 (Version 1)
Quarter: 2020Q1

REPORT INFORMATION
  Report Type: Spontaneous
  Country: US (occurrence: US)
  Receive Date: 20200121
  Receipt Date: 20200121
  Transmission Date: 20200409
  Serious: Yes (Hospitalization, Disabling, Other)
  Sender: FDA-Public Use
  Company Number: US-PFIZER INC-2019525683

PATIENT
  Age: 58 Year
  Sex: Female
  Weight: 40.36 kg

DRUGS (1)
  1. PREMARIN [Suspect]
     Active Substance: ESTROGENS, CONJUGATED
     Indication: MENOPAUSE
     Dosage: UNK, (1.25) 1X/DAY
     Dates: start: 1987

REACTIONS (1)
  - Lung neoplasm malignant [Unknown]
